FAERS Safety Report 16118220 (Version 1)
Quarter: 2019Q1

REPORT INFORMATION
  Report Type: Spontaneous
  Country: PT (occurrence: PT)
  Receive Date: 20190326
  Receipt Date: 20190326
  Transmission Date: 20190418
  Serious: Yes (Other)
  Sender: FDA-Public Use
  Company Number: PT-GUERBET-PT-20190009

PATIENT
  Age: 83 Year
  Sex: Male

DRUGS (1)
  1. LIPIODOL [Suspect]
     Active Substance: ETHIODIZED OIL
     Indication: SPINAL MYELOGRAM
     Route: 065

REACTIONS (2)
  - VIIIth nerve injury [Unknown]
  - Product use in unapproved indication [Unknown]
